FAERS Safety Report 7685038-3 (Version None)
Quarter: 2011Q3

REPORT INFORMATION
  Report Type: 
  Country: None (occurrence: None)
  Receive Date: 20110808
  Receipt Date: 20110726
  Transmission Date: 20111222
  Serious: Yes (Hospitalization, Other)
  Sender: FDA-Public Use
  Company Number: 18280

PATIENT
  Sex: Female
  Weight: 64.4108 kg

DRUGS (15)
  1. PREDNISONE [Concomitant]
  2. ALPRAZOLAM [Concomitant]
  3. SPIRIVA [Concomitant]
  4. ALBUTEROL NEBULIZER TREATMENTS [Concomitant]
  5. CHANTIX [Suspect]
     Indication: SMOKING CESSATION THERAPY
     Dosage: 1 MG, BID
  6. VENTOLIN HFA [Concomitant]
  7. DILTIAZEM [Concomitant]
  8. LORAZEPAM [Concomitant]
  9. OXYGEN [Concomitant]
  10. MIRTAZAPINE [Concomitant]
  11. GLASSIA [Suspect]
     Indication: ALPHA-1 ANTI-TRYPSIN DEFICIENCY
     Dosage: WEEKLY, IV
     Route: 042
     Dates: start: 20110401
  12. ADVAIR DISKUS 100/50 [Concomitant]
  13. PANTOPRAZOLE [Concomitant]
  14. DIGOXIN [Concomitant]
  15. CYCLOBENZAPRINE [Concomitant]

REACTIONS (11)
  - OEDEMA [None]
  - CONDITION AGGRAVATED [None]
  - FLUID RETENTION [None]
  - CHRONIC OBSTRUCTIVE PULMONARY DISEASE [None]
  - ABDOMINAL DISTENSION [None]
  - CARDIAC DISORDER [None]
  - WEIGHT INCREASED [None]
  - COR PULMONALE [None]
  - SWELLING [None]
  - PNEUMONIA [None]
  - BLOOD CREATINE PHOSPHOKINASE INCREASED [None]
